FAERS Safety Report 14554573 (Version 1)
Quarter: 2018Q1

REPORT INFORMATION
  Report Type: Spontaneous
  Country: US (occurrence: US)
  Receive Date: 20180218
  Receipt Date: 20180218
  Transmission Date: 20180509
  Serious: Yes (Other)
  Sender: FDA-Public Use
  Company Number: None

PATIENT
  Weight: 55.35 kg

DRUGS (4)
  1. LEVOTHOROXIN [Concomitant]
  2. FOSAMAX [Suspect]
     Active Substance: ALENDRONATE SODIUM
     Indication: OSTEOPENIA
     Dosage: ?          OTHER FREQUENCY:ONCE A WEEK;?
     Route: 048
  3. GAAAABEPENTIN [Concomitant]
  4. MULTI VITAMINS [Concomitant]
     Active Substance: VITAMINS

REACTIONS (1)
  - Pain in extremity [None]

NARRATIVE: CASE EVENT DATE: 20171115
